FAERS Safety Report 6530913-6 (Version None)
Quarter: 2010Q1

REPORT INFORMATION
  Report Type: 
  Country: None (occurrence: None)
  Receive Date: 20100108
  Receipt Date: 20090601
  Transmission Date: 20100710
  Serious: No
  Sender: FDA-Public Use
  Company Number: A0787730A

PATIENT
  Age: 58 Year
  Sex: Female

DRUGS (17)
  1. LOVAZA [Suspect]
     Dosage: 2CAP TWICE PER DAY
     Route: 048
     Dates: start: 20080801
  2. NOVOLOG [Concomitant]
  3. METFORMIN HYDROCHLORIDE [Concomitant]
  4. LEVEMIR [Concomitant]
  5. MAGNESIUM [Concomitant]
  6. LASIX [Concomitant]
  7. NEXIUM [Concomitant]
  8. GLYBURIDE [Concomitant]
  9. TRENTAL [Concomitant]
  10. CHLORAZEPAM [Concomitant]
  11. ADALAT [Concomitant]
  12. SIMVASTATIN [Concomitant]
  13. CALCIUM [Concomitant]
  14. CYMBALTA [Concomitant]
  15. LISINOPRIL [Concomitant]
  16. LEVOTHYROXINE SODIUM [Concomitant]
  17. ASPIRIN [Concomitant]

REACTIONS (4)
  - BLOOD CHOLESTEROL INCREASED [None]
  - BLOOD TRIGLYCERIDES INCREASED [None]
  - DRUG INEFFECTIVE [None]
  - HIGH DENSITY LIPOPROTEIN DECREASED [None]
